FAERS Safety Report 8999938 (Version 1)
Quarter: 2013Q1

REPORT INFORMATION
  Report Type: Spontaneous
  Country: JP (occurrence: JP)
  Receive Date: 20130102
  Receipt Date: 20130102
  Transmission Date: 20140127
  Serious: Yes (Death)
  Sender: FDA-Public Use
  Company Number: JP-JNJFOC-20121213187

PATIENT
  Sex: 0

DRUGS (4)
  1. DOXORUBICIN [Suspect]
     Indication: HODGKIN^S DISEASE
     Dosage: PATEINT HAD COMPLETED THE ABV THERAPY
     Route: 042
  2. DOXORUBICIN [Suspect]
     Indication: HODGKIN^S DISEASE
     Dosage: PATEINT HAD COMPLETED THE ABV THERAPY
     Route: 042
  3. BLEOMYCIN [Suspect]
     Indication: HODGKIN^S DISEASE
     Dosage: UPPER LIMIT, 15 MG TOTAL; PATEINT HAD COMPLETED THE ABV THERAPY
     Route: 042
  4. VINBLASTINE [Suspect]
     Indication: HODGKIN^S DISEASE
     Dosage: UPPER LIMIT, 15 MG TOTAL; PATEINT HAD COMPLETED THE ABV THERAPY
     Route: 042

REACTIONS (1)
  - B-cell lymphoma [Fatal]
